FAERS Safety Report 14187674 (Version 1)
Quarter: 2017Q4

REPORT INFORMATION
  Report Type: Spontaneous
  Country: US (occurrence: US)
  Receive Date: 20171114
  Receipt Date: 20171114
  Transmission Date: 20180321
  Serious: No
  Sender: FDA-Public Use
  Company Number: US-BAUSCH-BL-2017-026911

PATIENT
  Age: 81 Year
  Sex: Female
  Weight: 64 kg

DRUGS (5)
  1. VITAMIN G [Concomitant]
     Indication: THERAPEUTIC SKIN CARE TOPICAL
     Route: 065
  2. CETAPHIL [Suspect]
     Active Substance: AVOBENZONE\OCTOCRYLENE\TRICLOSAN
     Indication: SKIN WRINKLING
     Dosage: A WEEK AGO IN AUG/2017
     Route: 061
     Dates: start: 201708
  3. VITAMIN A [Concomitant]
     Active Substance: VITAMIN A
     Indication: THERAPEUTIC SKIN CARE TOPICAL
     Route: 065
  4. VITAMIN E [Concomitant]
     Active Substance: .ALPHA.-TOCOPHEROL
     Indication: THERAPEUTIC SKIN CARE TOPICAL
     Route: 065
  5. TRETINOIN. [Suspect]
     Active Substance: TRETINOIN
     Indication: SKIN WRINKLING
     Dosage: A WEEK AGO IN AUG/2017
     Route: 061
     Dates: start: 201708

REACTIONS (1)
  - Facial pain [Recovering/Resolving]

NARRATIVE: CASE EVENT DATE: 201708
